FAERS Safety Report 4534223-8 (Version None)
Quarter: 2004Q4

REPORT INFORMATION
  Report Type: 
  Country: None (occurrence: None)
  Receive Date: 20041221
  Receipt Date: 20041221
  Transmission Date: 20050328
  Serious: No
  Sender: FDA-Public Use
  Company Number: None

PATIENT
  Age: 37 Year
  Sex: Male
  Weight: 65.7716 kg

DRUGS (1)
  1. CIPRO XR [Suspect]
     Indication: PROSTATITIS
     Dosage: 2 PER DAY   ORAL TABLET
     Route: 048

REACTIONS (7)
  - DIARRHOEA [None]
  - DIFFICULTY IN WALKING [None]
  - DIZZINESS [None]
  - MALAISE [None]
  - PYREXIA [None]
  - VISION BLURRED [None]
  - VOMITING [None]
